FAERS Safety Report 8602528-7 (Version None)
Quarter: 2012Q3

REPORT INFORMATION
  Report Type: 
  Country: None (occurrence: None)
  Receive Date: 20120817
  Receipt Date: 20120719
  Transmission Date: 20120928
  Serious: Yes (Hospitalization)
  Sender: FDA-Public Use
  Company Number: CN-ASTRAZENECA-2011SE03104

PATIENT
  Age: 19049 Day
  Sex: Female
  Weight: 57 kg

DRUGS (1)
  1. OMEPRAZOLE MAGNESIUM [Suspect]
     Indication: ANTACID THERAPY
     Route: 048
     Dates: start: 20100529, end: 20100602

REACTIONS (7)
  - CHILLS [None]
  - DRUG-INDUCED LIVER INJURY [None]
  - DIZZINESS [None]
  - ABDOMINAL DISCOMFORT [None]
  - RASH MACULO-PAPULAR [None]
  - PYREXIA [None]
  - ANAPHYLACTOID REACTION [None]
